FAERS Safety Report 23872524 (Version 2)
Quarter: 2024Q2

REPORT INFORMATION
  Report Type: Report from Study
  Country: DE (occurrence: DE)
  Receive Date: 20240520
  Receipt Date: 20240614
  Transmission Date: 20240716
  Serious: Yes (Death, Hospitalization)
  Sender: FDA-Public Use
  Company Number: DE-ULTRAGENYX PHARMACEUTICAL INC.-DE-UGX-24-00963

PATIENT
  Age: 9 Month
  Sex: Male
  Weight: 9.3 kg

DRUGS (12)
  1. TRIHEPTANOIN [Suspect]
     Active Substance: TRIHEPTANOIN
     Indication: Pyruvate carboxylase deficiency
     Dosage: 5.6 MILLILITER, FIVE TIMES A DAY, ORALLY/PER TUBE
     Dates: start: 20230812
  2. TRIHEPTANOIN [Suspect]
     Active Substance: TRIHEPTANOIN
     Dosage: 3 MILLILITRE PER KILOGRAM, QD
  3. SODIUM CITRATE [Concomitant]
     Active Substance: SODIUM CITRATE
     Indication: Product used for unknown indication
     Dosage: 6.5 MILLILITER, QID
  4. ORNITHINE ASPARTATE [Concomitant]
     Active Substance: ORNITHINE ASPARTATE
     Indication: Product used for unknown indication
     Dosage: 8.0 MILLILITER, QID
  5. LEVOCARNITINE [Concomitant]
     Active Substance: LEVOCARNITINE
     Indication: Product used for unknown indication
     Dosage: 0.4 MILLILITER, BID
  6. TIAMINE PLUS [Concomitant]
     Indication: Product used for unknown indication
     Dosage: 50 MILLIGRAM, BID
  7. SODIUM BICARBONATE [Concomitant]
     Active Substance: SODIUM BICARBONATE
     Indication: Product used for unknown indication
     Dosage: 4 MILLILITER, TID
  8. VALPROATE [Concomitant]
     Active Substance: VALPROIC ACID
     Indication: Product used for unknown indication
     Dosage: 6 MILLILITER, BID
  9. ETHOSUXIMIDE [Concomitant]
     Active Substance: ETHOSUXIMIDE
     Indication: Product used for unknown indication
     Dosage: 3.5 MILLILITER, BID
  10. OMEPRAZOLE [Concomitant]
     Active Substance: DONEPEZIL HYDROCHLORIDE\OMEPRAZOLE\OMEPRAZOLE MAGNESIUM
     Indication: Product used for unknown indication
     Dosage: 2 MILLIGRAM, BID
  11. PROTEIN [Concomitant]
     Active Substance: PROTEIN
     Indication: Product used for unknown indication
     Dosage: 1.4 GRAM PER KILOGRAM, QD
  12. CARBOHYDRATES [Concomitant]
     Active Substance: CARBOHYDRATES
     Indication: Product used for unknown indication
     Dosage: 7.7 GRAM PER KILOGRAM, QD

REACTIONS (5)
  - Pneumonia [Fatal]
  - Respiratory failure [Fatal]
  - Cardiac failure [Fatal]
  - Pyruvate carboxylase deficiency [Unknown]
  - Blood urine present [Recovered/Resolved]

NARRATIVE: CASE EVENT DATE: 20240511
